FAERS Safety Report 24635550 (Version 1)
Quarter: 2024Q4

REPORT INFORMATION
  Report Type: Spontaneous
  Country: US (occurrence: US)
  Receive Date: 20241119
  Receipt Date: 20241119
  Transmission Date: 20250114
  Serious: Yes (Other)
  Sender: HIKMA
  Company Number: US-HIKMA PHARMACEUTICALS USA INC.-US-H14001-24-09745

PATIENT
  Sex: Female

DRUGS (2)
  1. BUPRENORPHINE [Suspect]
     Active Substance: BUPRENORPHINE
     Indication: Product used for unknown indication
     Dosage: UNKNOWN
     Route: 048
  2. BUPRENORPHINE [Suspect]
     Active Substance: BUPRENORPHINE
     Dosage: UNKNOWN
     Route: 048

REACTIONS (19)
  - Panic reaction [Unknown]
  - Chest discomfort [Unknown]
  - Crying [Unknown]
  - Speech disorder [Unknown]
  - Blindness [Unknown]
  - Brain fog [Unknown]
  - General physical health deterioration [Unknown]
  - Illness [Unknown]
  - Fear [Unknown]
  - Tremor [Unknown]
  - Sleep deficit [Unknown]
  - Feeling abnormal [Unknown]
  - Anxiety [Unknown]
  - Fatigue [Unknown]
  - Impaired driving ability [Unknown]
  - Headache [Unknown]
  - Nervousness [Unknown]
  - Product dose omission issue [Unknown]
  - Poor quality product administered [Unknown]
